FAERS Safety Report 16128207 (Version 1)
Quarter: 2019Q1

REPORT INFORMATION
  Report Type: Spontaneous
  Country: US (occurrence: US)
  Receive Date: 20190328
  Receipt Date: 20190328
  Transmission Date: 20190418
  Serious: No
  Sender: FDA-Public Use
  Company Number: US-COVIS PHARMA B.V.-2018COV03801

PATIENT
  Age: 82 Year
  Sex: Female

DRUGS (1)
  1. NISOLDIPINE. [Suspect]
     Active Substance: NISOLDIPINE

REACTIONS (1)
  - Malaise [Unknown]
